FAERS Safety Report 7033670-2 (Version None)
Quarter: 2010Q4

REPORT INFORMATION
  Report Type: 
  Country: None (occurrence: None)
  Receive Date: 20101007
  Receipt Date: 20100825
  Transmission Date: 20110411
  Serious: Yes (Death, Other)
  Sender: FDA-Public Use
  Company Number: US-BAXTER-2010BH012576

PATIENT
  Age: 87 Year
  Sex: Male

DRUGS (30)
  1. HEPARIN SODIUM INJECTION [Suspect]
     Indication: AORTIC ANEURYSM REPAIR
     Route: 042
     Dates: start: 20080317, end: 20080501
  2. HEPARIN SODIUM INJECTION [Suspect]
     Indication: ATRIAL FLUTTER
     Route: 042
     Dates: start: 20080317, end: 20080501
  3. HEPARIN SODIUM INJECTION [Suspect]
     Route: 058
     Dates: start: 20080317, end: 20080501
  4. HEPARIN SODIUM INJECTION [Suspect]
     Route: 058
     Dates: start: 20080317, end: 20080501
  5. HEPARIN SODIUM INJECTION [Suspect]
     Route: 065
     Dates: start: 20080328, end: 20080328
  6. HEPARIN SODIUM INJECTION [Suspect]
     Route: 065
     Dates: start: 20080328, end: 20080328
  7. HEPARIN SODIUM INJECTION [Suspect]
     Route: 042
     Dates: start: 20080422, end: 20080422
  8. HEPARIN SODIUM INJECTION [Suspect]
     Route: 042
     Dates: start: 20080422, end: 20080422
  9. HEPARIN SODIUM INJECTION [Suspect]
     Route: 042
     Dates: start: 20080422, end: 20080422
  10. HEPARIN SODIUM INJECTION [Suspect]
     Route: 042
     Dates: start: 20080422, end: 20080422
  11. HEPARIN SODIUM INJECTION [Suspect]
     Route: 042
     Dates: start: 20080424, end: 20080424
  12. HEPARIN SODIUM INJECTION [Suspect]
     Route: 042
     Dates: start: 20080424, end: 20080424
  13. HEPARIN SODIUM INJECTION [Suspect]
     Route: 042
     Dates: start: 20080424, end: 20080424
  14. HEPARIN SODIUM INJECTION [Suspect]
     Route: 042
     Dates: start: 20080424, end: 20080424
  15. HEPARIN SODIUM INJECTION [Suspect]
     Route: 042
     Dates: start: 20080426, end: 20080426
  16. HEPARIN SODIUM INJECTION [Suspect]
     Route: 042
     Dates: start: 20080426, end: 20080426
  17. HEPARIN SODIUM INJECTION [Suspect]
     Route: 042
     Dates: start: 20080426, end: 20080426
  18. HEPARIN SODIUM INJECTION [Suspect]
     Route: 042
     Dates: start: 20080426, end: 20080426
  19. HEPARIN SODIUM INJECTION [Suspect]
     Route: 042
     Dates: start: 20080501, end: 20080501
  20. HEPARIN SODIUM INJECTION [Suspect]
     Route: 042
     Dates: start: 20080501, end: 20080501
  21. HEPARIN SODIUM INJECTION [Suspect]
     Route: 042
     Dates: start: 20080501, end: 20080501
  22. HEPARIN SODIUM INJECTION [Suspect]
     Route: 042
     Dates: start: 20080501, end: 20080501
  23. DIGOXIN [Concomitant]
     Indication: PRODUCT USED FOR UNKNOWN INDICATION
     Route: 065
  24. METOPROLOL TARTRATE [Concomitant]
     Indication: PRODUCT USED FOR UNKNOWN INDICATION
     Route: 065
  25. CRESTOR [Concomitant]
     Indication: PRODUCT USED FOR UNKNOWN INDICATION
     Route: 065
  26. ASPIRIN [Concomitant]
     Indication: PRODUCT USED FOR UNKNOWN INDICATION
     Route: 065
  27. VITAMIN E [Concomitant]
     Indication: PRODUCT USED FOR UNKNOWN INDICATION
     Route: 065
  28. LEVOXYL [Concomitant]
     Indication: PRODUCT USED FOR UNKNOWN INDICATION
     Route: 065
  29. MULTI-VITAMINS [Concomitant]
     Indication: PRODUCT USED FOR UNKNOWN INDICATION
     Route: 065
  30. NEPHRO-VITE RX [Concomitant]
     Indication: PRODUCT USED FOR UNKNOWN INDICATION
     Route: 065

REACTIONS (11)
  - ASTHENIA [None]
  - CARDIAC ARREST [None]
  - CARDIAC DISORDER [None]
  - CHILLS [None]
  - NAUSEA [None]
  - RENAL FAILURE CHRONIC [None]
  - RESPIRATORY ACIDOSIS [None]
  - SEPSIS [None]
  - THROMBOCYTOPENIA [None]
  - VOMITING [None]
  - WEIGHT DECREASED [None]
